FAERS Safety Report 9007527 (Version 1)
Quarter: 2013Q1

REPORT INFORMATION
  Report Type: Spontaneous
  Country: US (occurrence: US)
  Receive Date: 20130111
  Receipt Date: 20130111
  Transmission Date: 20140127
  Serious: Yes (Other)
  Sender: FDA-Public Use
  Company Number: US-009507513-0907USA03801

PATIENT
  Age: 15 Month
  Sex: Male
  Weight: 20.87 kg

DRUGS (2)
  1. SINGULAIR [Suspect]
     Indication: ASTHMA
     Dosage: UNK
     Dates: start: 20070501, end: 20080520
  2. SINGULAIR [Suspect]
     Indication: ASTHMA
     Dosage: UNK
     Route: 048
     Dates: start: 20030301, end: 20070501

REACTIONS (8)
  - Balance disorder [Unknown]
  - Attention deficit/hyperactivity disorder [Unknown]
  - Autism spectrum disorder [Unknown]
  - Communication disorder [Unknown]
  - Crying [Unknown]
  - Mood swings [Unknown]
  - Screaming [Unknown]
  - Speech disorder developmental [Recovering/Resolving]
